FAERS Safety Report 6176524-6 (Version None)
Quarter: 2009Q2

REPORT INFORMATION
  Report Type: 
  Country: None (occurrence: None)
  Receive Date: 20090501
  Receipt Date: 20081001
  Transmission Date: 20091009
  Serious: Yes (Other)
  Sender: FDA-Public Use
  Company Number: DE-ALEXION-A200800119

PATIENT

DRUGS (3)
  1. SOLIRIS [Suspect]
     Indication: PAROXYSMAL NOCTURNAL HAEMOGLOBINURIA
     Dosage: 600 MG, INDUCTION PHASE
     Route: 042
     Dates: start: 20070906
  2. SOLIRIS [Suspect]
     Dosage: 900 MG, MAINTENANCE PHASE
     Route: 042
     Dates: end: 20080214
  3. SOLIRIS [Suspect]
     Dosage: UNK MG, UNK
     Route: 042
     Dates: start: 20080417

REACTIONS (3)
  - ARTHRALGIA [None]
  - BLOOD LACTATE DEHYDROGENASE INCREASED [None]
  - RENAL FAILURE [None]
